FAERS Safety Report 21336642 (Version 2)
Quarter: 2022Q3

REPORT INFORMATION
  Report Type: Spontaneous
  Country: US (occurrence: US)
  Receive Date: 20220915
  Receipt Date: 20220918
  Transmission Date: 20221027
  Serious: Yes (Hospitalization)
  Sender: FDA-Public Use
  Company Number: US-BRISTOL-MYERS SQUIBB COMPANY-2022-105268

PATIENT
  Age: 81 Year
  Sex: Female

DRUGS (1)
  1. POMALYST [Suspect]
     Active Substance: POMALIDOMIDE
     Indication: Product used for unknown indication
     Dosage: TAKE 1 CAPSULE BY MOUTH EVERY DAY FOR 21 DAYS ON THEN 7 DAYS OFF FOR A 28 DAY CYCLE
     Route: 048
     Dates: start: 20190425

REACTIONS (5)
  - Somnolence [Recovered/Resolved]
  - COVID-19 [Recovered/Resolved]
  - Urinary tract infection [Recovered/Resolved]
  - White blood cell count decreased [Recovered/Resolved]
  - Asthenia [Recovered/Resolved]
